FAERS Safety Report 11132072 (Version 1)
Quarter: 2015Q2

REPORT INFORMATION
  Report Type: Spontaneous
  Country: US (occurrence: US)
  Receive Date: 20150522
  Receipt Date: 20150522
  Transmission Date: 20150821
  Serious: No
  Sender: FDA-Public Use
  Company Number: US-MYLANLABS-2014S1014925

PATIENT
  Age: 28 Year
  Sex: Female
  Weight: 63.5 kg

DRUGS (2)
  1. ZOLPIDEM TARTRATE TABLETS, USP [Suspect]
     Active Substance: ZOLPIDEM TARTRATE
     Indication: INSOMNIA
     Dosage: 10 MG,HS
     Route: 048
     Dates: end: 20140602
  2. ZOLPIDEM TARTRATE TABLETS, USP [Suspect]
     Active Substance: ZOLPIDEM TARTRATE
     Dosage: 40 MG,HS
     Route: 048
     Dates: start: 20140603, end: 20140603

REACTIONS (3)
  - Abnormal sleep-related event [Recovered/Resolved]
  - Amnesia [Recovered/Resolved]
  - Incorrect dosage administered [Recovered/Resolved]

NARRATIVE: CASE EVENT DATE: 20140603
